FAERS Safety Report 5354629-7 (Version None)
Quarter: 2007Q2

REPORT INFORMATION
  Report Type: 
  Country: None (occurrence: None)
  Receive Date: 20070608
  Receipt Date: 20070530
  Transmission Date: 20071010
  Serious: Yes (Other)
  Sender: FDA-Public Use
  Company Number: L07-JPN-02334-01

PATIENT
  Age: 63 Year
  Sex: Female

DRUGS (2)
  1. CARBAMAZEPINE [Suspect]
     Dosage: 100 MG BID
  2. CARBAMAZEPINE [Suspect]

REACTIONS (5)
  - ATRIOVENTRICULAR BLOCK COMPLETE [None]
  - ATRIOVENTRICULAR BLOCK SECOND DEGREE [None]
  - CEREBELLAR ATROPHY [None]
  - CEREBRAL CALCIFICATION [None]
  - DYSPNOEA EXERTIONAL [None]
